FAERS Safety Report 7057281-8 (Version None)
Quarter: 2010Q4

REPORT INFORMATION
  Report Type: 
  Country: None (occurrence: None)
  Receive Date: 20101022
  Receipt Date: 20101012
  Transmission Date: 20110411
  Serious: Yes (Hospitalization)
  Sender: FDA-Public Use
  Company Number: US-SANOFI-AVENTIS-2010SA008894

PATIENT
  Age: 82 Year
  Sex: Female

DRUGS (4)
  1. PLAVIX [Suspect]
     Route: 048
     Dates: start: 19990101
  2. ATENOLOL [Concomitant]
     Dates: start: 19900101
  3. HYDROCHLOROTHIAZIDE [Concomitant]
     Dates: start: 19900101
  4. ALLOPURINOL [Concomitant]
     Dates: start: 19900101

REACTIONS (3)
  - HAEMORRHAGE [None]
  - INTESTINAL RESECTION [None]
  - URTICARIA [None]
